FAERS Safety Report 8842927 (Version 1)
Quarter: 2012Q4

REPORT INFORMATION
  Report Type: 
  Country: US (occurrence: US)
  Receive Date: 20121016
  Receipt Date: 20121016
  Transmission Date: 20130627
  Serious: No
  Sender: FDA-Public Use
  Company Number: US-ASTRAZENECA-2012SE76267

PATIENT
  Age: 37 Year
  Sex: Female
  Weight: 102.5 kg

DRUGS (12)
  1. SEROQUEL XR [Suspect]
     Indication: BIPOLAR DISORDER
     Route: 048
     Dates: start: 201208, end: 201209
  2. SEROQUEL XR [Suspect]
     Indication: DEPRESSION
     Route: 048
     Dates: start: 201208, end: 201209
  3. SEROQUEL XR [Suspect]
     Indication: MOOD SWINGS
     Route: 048
     Dates: start: 201208, end: 201209
  4. SEROQUEL XR [Suspect]
     Indication: SLEEP DISORDER
     Route: 048
     Dates: start: 201208, end: 201209
  5. METOPROLOL TARTRATE [Suspect]
     Indication: BLOOD PRESSURE ABNORMAL
     Route: 065
  6. KLONOPIN [Concomitant]
     Indication: DEPRESSION
  7. PAXIL [Concomitant]
     Indication: DEPRESSION
  8. METFORMIN [Concomitant]
     Indication: DIABETES MELLITUS
  9. GLYPIZIDE [Concomitant]
     Indication: DIABETES MELLITUS
  10. ENALAPRIL [Concomitant]
     Indication: BLOOD PRESSURE ABNORMAL
  11. GENERIC LOPID [Concomitant]
     Indication: BLOOD CHOLESTEROL ABNORMAL
  12. ALBUTEROL [Concomitant]
     Indication: ASTHMA

REACTIONS (4)
  - Feeling abnormal [Not Recovered/Not Resolved]
  - Tremor [Not Recovered/Not Resolved]
  - Dyspnoea [Unknown]
  - Drug dose omission [Not Recovered/Not Resolved]
